FAERS Safety Report 8480148-5 (Version None)
Quarter: 2012Q2

REPORT INFORMATION
  Report Type: 
  Country: None (occurrence: None)
  Receive Date: 20120629
  Receipt Date: 20120621
  Transmission Date: 20120825
  Serious: Yes (Hospitalization)
  Sender: FDA-Public Use
  Company Number: US-ASTRAZENECA-2012SE41790

PATIENT
  Age: 42 Year
  Sex: Female

DRUGS (8)
  1. EFFEXOR [Suspect]
     Route: 065
  2. CELEXA [Suspect]
     Route: 065
  3. LITHIUM CARBONATE [Suspect]
     Route: 065
  4. LETAIRIS [Suspect]
     Indication: PULMONARY HYPERTENSION
     Route: 048
     Dates: start: 20100730
  5. GEODON [Suspect]
     Route: 065
  6. SEROQUEL [Suspect]
     Route: 048
  7. XANAX [Suspect]
     Route: 065
  8. VICODIN [Suspect]
     Route: 065

REACTIONS (1)
  - SYNCOPE [None]
